FAERS Safety Report 13901595 (Version 2)
Quarter: 2018Q3

REPORT INFORMATION
  Report Type: Spontaneous
  Country: DK (occurrence: DK)
  Receive Date: 20170824
  Receipt Date: 20180904
  Transmission Date: 20181010
  Serious: Yes (Hospitalization)
  Sender: FDA-Public Use
  Company Number: PHHY2017DK122005

PATIENT
  Age: 71 Year
  Sex: Male

DRUGS (3)
  1. ZOMETA [Suspect]
     Active Substance: ZOLEDRONIC ACID
     Indication: OSTEOPOROSIS
     Dosage: 4 MG PER 100 ML, QMO
     Route: 042
     Dates: start: 20150108, end: 20161125
  2. PAMIFOS [Suspect]
     Active Substance: PAMIDRONATE DISODIUM
     Indication: OSTEOPOROSIS
     Dosage: 30 MG, QMO
     Route: 042
     Dates: start: 20111108, end: 201611
  3. ACLASTA [Concomitant]
     Active Substance: ZOLEDRONIC ACID
     Indication: OSTEOPOROSIS
     Dosage: 100 ML, (STYRKE 100 ML) 1 YEAR
     Route: 042
     Dates: start: 20150108, end: 20161125

REACTIONS (4)
  - Exposed bone in jaw [Recovered/Resolved]
  - Pain in jaw [Unknown]
  - Oral cavity fistula [Unknown]
  - Osteonecrosis of jaw [Recovered/Resolved with Sequelae]

NARRATIVE: CASE EVENT DATE: 2017
